FAERS Safety Report 10551003 (Version 1)
Quarter: 2014Q4

REPORT INFORMATION
  Report Type: Spontaneous
  Country: US (occurrence: None)
  Receive Date: 20141028
  Receipt Date: 20141028
  Transmission Date: 20150529
  Serious: Yes (Other)
  Sender: FDA-Public Use
  Company Number: None

PATIENT
  Age: 26 Year
  Sex: Male
  Weight: 92.53 kg

DRUGS (1)
  1. OLANZAPINE. [Suspect]
     Active Substance: OLANZAPINE
     Indication: AFFECTIVE DISORDER
     Dosage: 1 PILL ONCE DAILY TAKEN BY MOUTH
     Route: 048
     Dates: start: 20141024, end: 20141027

REACTIONS (6)
  - Oral pain [None]
  - Oropharyngeal pain [None]
  - Muscle twitching [None]
  - Speech disorder [None]
  - Sleep disorder [None]
  - Dry mouth [None]

NARRATIVE: CASE EVENT DATE: 20141024
